FAERS Safety Report 22293412 (Version 1)
Quarter: 2023Q2

REPORT INFORMATION
  Report Type: Spontaneous
  Country: None (occurrence: US)
  Receive Date: 20230508
  Receipt Date: 20230508
  Transmission Date: 20230721
  Serious: No
  Sender: FDA-Public Use
  Company Number: US-Mission Pharmacal Company-2141203

PATIENT
  Age: 76 Year
  Sex: Male

DRUGS (9)
  1. THIOLA EC [Suspect]
     Active Substance: TIOPRONIN
     Indication: Amino acid metabolism disorder
     Route: 048
     Dates: start: 20191006
  2. METFORMIN [Concomitant]
     Active Substance: METFORMIN HYDROCHLORIDE
  3. OMEPRAZOLE [Concomitant]
     Active Substance: OMEPRAZOLE
  4. ALLOPURINOL [Concomitant]
     Active Substance: ALLOPURINOL
  5. POTASSIUM CITRATE [Concomitant]
     Active Substance: POTASSIUM CITRATE
     Route: 048
  6. TAMSULOSIN [Concomitant]
     Active Substance: TAMSULOSIN
  7. ASPIRIN [Concomitant]
     Active Substance: ASPIRIN
  8. VITAMIN C [Concomitant]
     Active Substance: ASCORBIC ACID
  9. ROSUVASTATIN [Concomitant]
     Active Substance: ROSUVASTATIN

REACTIONS (2)
  - Rash [Unknown]
  - Hyperglycaemia [Unknown]
